FAERS Safety Report 5832464-0 (Version None)
Quarter: 2008Q3

REPORT INFORMATION
  Report Type: 
  Country: None (occurrence: None)
  Receive Date: 20080730
  Receipt Date: 20080721
  Transmission Date: 20090109
  Serious: Yes (Other)
  Sender: FDA-Public Use
  Company Number: 19818

PATIENT
  Sex: Female

DRUGS (2)
  1. PACLITAXEL [Suspect]
     Dates: start: 20080718
  2. CARBOPLATIN [Suspect]

REACTIONS (6)
  - BACK PAIN [None]
  - CHEST DISCOMFORT [None]
  - ERYTHEMA [None]
  - HYPERSENSITIVITY [None]
  - INFUSION RELATED REACTION [None]
  - VOMITING [None]
